FAERS Safety Report 19693308 (Version 3)
Quarter: 2021Q3

REPORT INFORMATION
  Report Type: Spontaneous
  Country: DK (occurrence: DK)
  Receive Date: 20210812
  Receipt Date: 20210830
  Transmission Date: 20211014
  Serious: Yes (Other)
  Sender: FDA-Public Use
  Company Number: DK-MYLANLABS-2021M1050080

PATIENT
  Age: 74 Year
  Sex: Male

DRUGS (7)
  1. DOXORUBICIN [Suspect]
     Active Substance: DOXORUBICIN
     Indication: SMALL CELL LUNG CANCER
     Dosage: UNK, CYCLE
  2. VINCRISTINE SULFATE. [Suspect]
     Active Substance: VINCRISTINE SULFATE
     Dosage: 1.3 MG/M2, CYCLIC (EVERY THIRD OR FOURTH WEEK)
     Route: 042
  3. VINCRISTINE SULFATE. [Suspect]
     Active Substance: VINCRISTINE SULFATE
     Indication: SMALL CELL LUNG CANCER
     Dosage: 1.3 MG/M2, CYCLIC (WEEKLY FOR FIVE WEEKS)
     Route: 042
  4. VEPESID [Suspect]
     Active Substance: ETOPOSIDE
     Indication: SMALL CELL LUNG CANCER
     Dosage: UNK, CYCLE
     Route: 065
  5. METHOTREXATE. [Suspect]
     Active Substance: METHOTREXATE
     Indication: SMALL CELL LUNG CANCER
     Dosage: UNK UNK, CYCLE
     Route: 065
  6. LOMUSTINE. [Suspect]
     Active Substance: LOMUSTINE
     Indication: SMALL CELL LUNG CANCER
     Dosage: 70 MG/M2, CYCLIC (EVERY FOURTH OR SEVENTH WEEK)
     Route: 048
  7. CYCLOPHOSPHAMIDE. [Suspect]
     Active Substance: CYCLOPHOSPHAMIDE
     Indication: SMALL CELL LUNG CANCER
     Dosage: 1000 MG/M2, CYCLIC (EVERY FOURTH OR SEVENTH WEEK)
     Route: 042

REACTIONS (2)
  - Acute myeloid leukaemia [Not Recovered/Not Resolved]
  - Second primary malignancy [Not Recovered/Not Resolved]
